FAERS Safety Report 5171939-7 (Version None)
Quarter: 2006Q4

REPORT INFORMATION
  Report Type: 
  Country: None (occurrence: None)
  Receive Date: 20061205
  Receipt Date: 20061124
  Transmission Date: 20070319
  Serious: Yes (Other)
  Sender: FDA-Public Use
  Company Number: 2006144942

PATIENT
  Age: 83 Year
  Sex: Male
  Weight: 78.9259 kg

DRUGS (1)
  1. BEN-GAY ULTRA (MENTHOL, CAMPHOR, METHYL SALICYLATE) [Suspect]
     Indication: LIGAMENT INJURY
     Dosage: 1 APPLICATION OVER CALF ONCE, TOPICAL
     Route: 061
     Dates: start: 20061101, end: 20061101

REACTIONS (2)
  - APPLICATION SITE BURN [None]
  - APPLICATION SITE PAIN [None]
